FAERS Safety Report 8255551-9 (Version None)
Quarter: 2012Q1

REPORT INFORMATION
  Report Type: 
  Country: None (occurrence: None)
  Receive Date: 20120329
  Receipt Date: 20120309
  Transmission Date: 20120608
  Serious: Yes (Hospitalization)
  Sender: FDA-Public Use
  Company Number: 2135225-2012-00031

PATIENT
  Age: 60 Year
  Sex: Female

DRUGS (2)
  1. AETHOXYSKLEROL 0.5% (LIQUID) POLIDOCANOL [Suspect]
     Indication: SCLEROTHERAPY
     Dosage: 4ML, 1ST SESSION, I.V.
     Route: 042
     Dates: start: 20120112
  2. AETHOXYSKLEROL 0.5% (LIQUID) POLIDOCANOL [Suspect]
     Indication: SCLEROTHERAPY
     Dosage: 4ML, 1ST SESSION, I.V.
     Route: 042
     Dates: start: 20120119

REACTIONS (1)
  - PULMONARY EMBOLISM [None]
